FAERS Safety Report 15410740 (Version 1)
Quarter: 2018Q3

REPORT INFORMATION
  Report Type: Spontaneous
  Country: GB (occurrence: GB)
  Receive Date: 20180921
  Receipt Date: 20180921
  Transmission Date: 20181010
  Serious: Yes (Other)
  Sender: FDA-Public Use
  Company Number: GB-CONCORDIA PHARMACEUTICALS INC.-GSH201809-003343

PATIENT
  Age: 52 Year
  Sex: Female
  Weight: 61.68 kg

DRUGS (1)
  1. HYDROXYCHLOROQUINE [Suspect]
     Active Substance: HYDROXYCHLOROQUINE
     Indication: SJOGREN^S SYNDROME
     Route: 048
     Dates: start: 20180731, end: 20180807

REACTIONS (7)
  - Heart rate decreased [Recovered/Resolved]
  - Weight decreased [Recovering/Resolving]
  - Nausea [Recovered/Resolved]
  - Product substitution issue [Unknown]
  - Hypotension [Recovered/Resolved]
  - Abdominal pain upper [Recovered/Resolved]
  - Diarrhoea [Recovered/Resolved]

NARRATIVE: CASE EVENT DATE: 20180731
